FAERS Safety Report 12426049 (Version 1)
Quarter: 2016Q2

REPORT INFORMATION
  Report Type: Spontaneous
  Country: IL (occurrence: IL)
  Receive Date: 20160601
  Receipt Date: 20160601
  Transmission Date: 20160815
  Serious: Yes (Other)
  Sender: FDA-Public Use
  Company Number: IL-MYLANLABS-2016M1022601

PATIENT

DRUGS (1)
  1. CISPLATIN. [Suspect]
     Active Substance: CISPLATIN
     Indication: LUNG SQUAMOUS CELL CARCINOMA STAGE IV
     Dosage: TOTAL DOSE OF 390 MG/M2
     Route: 065

REACTIONS (2)
  - Salivary gland mucocoele [Recovering/Resolving]
  - Mucosal inflammation [Recovering/Resolving]
